FAERS Safety Report 11660052 (Version 1)
Quarter: 2015Q4

REPORT INFORMATION
  Report Type: Spontaneous
  Country: US (occurrence: None)
  Receive Date: 20151023
  Receipt Date: 20151023
  Transmission Date: 20160304
  Serious: Yes (Other)
  Sender: FDA-Public Use
  Company Number: None

PATIENT
  Age: 24 Year
  Sex: Female

DRUGS (1)
  1. ACCUTANE [Suspect]
     Active Substance: ISOTRETINOIN
     Indication: ACNE
     Dosage: 1 PILL  BID  ORAL
     Route: 048
     Dates: start: 20150914, end: 20151022

REACTIONS (3)
  - Pregnancy on contraceptive [None]
  - Exposure during pregnancy [None]
  - Pregnancy with contraceptive device [None]

NARRATIVE: CASE EVENT DATE: 20151014
